FAERS Safety Report 10582582 (Version 4)
Quarter: 2015Q2

REPORT INFORMATION
  Report Type: Spontaneous
  Country: FR (occurrence: FR)
  Receive Date: 20141113
  Receipt Date: 20150630
  Transmission Date: 20150821
  Serious: Yes (Hospitalization)
  Sender: FDA-Public Use
  Company Number: FR-ASTRAZENECA-2014SE84482

PATIENT
  Age: 27520 Day
  Sex: Female

DRUGS (11)
  1. HYDREA [Suspect]
     Active Substance: HYDROXYUREA
     Indication: ESSENTIAL THROMBOCYTHAEMIA
     Route: 048
     Dates: start: 2009, end: 20140807
  2. INEXIUM IV [Suspect]
     Active Substance: ESOMEPRAZOLE
     Route: 042
  3. CARDENSIEL [Suspect]
     Active Substance: BISOPROLOL FUMARATE
     Indication: HYPERTENSION
     Route: 048
     Dates: end: 201407
  4. XANAX [Concomitant]
     Active Substance: ALPRAZOLAM
  5. INEXIUM [Suspect]
     Active Substance: ESOMEPRAZOLE
     Route: 048
     Dates: start: 2012, end: 20140807
  6. LYSANXIA [Suspect]
     Active Substance: PRAZEPAM
     Dosage: 15 MG/ML, 5 MG PER DAY
     Route: 048
     Dates: start: 2012, end: 20140810
  7. NOCTAMIDE [Suspect]
     Active Substance: LORMETAZEPAM
     Route: 048
     Dates: start: 2012, end: 20140813
  8. BISOCE [Concomitant]
     Active Substance: BISOPROLOL
  9. ZOLOFT [Suspect]
     Active Substance: SERTRALINE HYDROCHLORIDE
     Indication: DEPRESSION
     Route: 048
     Dates: end: 201407
  10. ATARAX [Concomitant]
     Active Substance: HYDROXYZINE\HYDROXYZINE HYDROCHLORIDE
  11. KARDEGIC [Concomitant]
     Active Substance: ASPIRIN LYSINE

REACTIONS (2)
  - Lymphadenopathy [Unknown]
  - Cutaneous lupus erythematosus [Recovered/Resolved]

NARRATIVE: CASE EVENT DATE: 20140615
